FAERS Safety Report 10254763 (Version 1)
Quarter: 2014Q2

REPORT INFORMATION
  Report Type: Spontaneous
  Country: US (occurrence: None)
  Receive Date: 20140620
  Receipt Date: 20140620
  Transmission Date: 20141212
  Serious: Yes (Life-Threatening, Hospitalization)
  Sender: FDA-Public Use
  Company Number: None

PATIENT
  Age: 34 Year
  Sex: 0
  Weight: 60 kg

DRUGS (1)
  1. AVELOX [Suspect]
     Indication: PHARYNGITIS
     Dosage: 1 PILL ONCE DAILY TAKEN BY MOUTH
     Route: 048
     Dates: start: 20140305, end: 20140307

REACTIONS (7)
  - Anxiety [None]
  - Syncope [None]
  - Heart rate irregular [None]
  - Dysphagia [None]
  - Chest discomfort [None]
  - Anaphylactic shock [None]
  - Hypotension [None]
